FAERS Safety Report 5752199-2 (Version None)
Quarter: 2008Q2

REPORT INFORMATION
  Report Type: 
  Country: None (occurrence: None)
  Receive Date: 20080529
  Receipt Date: 20080521
  Transmission Date: 20081010
  Serious: Yes (Hospitalization)
  Sender: FDA-Public Use
  Company Number: JP-ELI_LILLY_AND_COMPANY-JP200602000853

PATIENT
  Sex: Male
  Weight: 54.4 kg

DRUGS (9)
  1. HUMALOG MIX 50/50 [Suspect]
     Indication: TYPE 2 DIABETES MELLITUS
     Dosage: 20 U, EACH MORNING
     Route: 058
     Dates: start: 20060111, end: 20060113
  2. HUMALOG MIX 50/50 [Suspect]
     Dosage: 12 U, EACH EVENING
     Route: 058
     Dates: start: 20060111, end: 20060113
  3. HUMULIN 70/30 [Suspect]
     Indication: TYPE 2 DIABETES MELLITUS
     Dates: end: 20060110
  4. HUMULIN 70/30 [Suspect]
     Dates: start: 20060113
  5. HUMACART REGULAR [Suspect]
     Indication: TYPE 2 DIABETES MELLITUS
     Dates: end: 20060110
  6. HUMACART REGULAR [Suspect]
     Dates: start: 20060113
  7. MAALOX [Concomitant]
     Indication: GASTRITIS
     Dosage: 1500 MG, DAILY (1/D)
     Route: 048
     Dates: start: 20031102
  8. FLOMOX [Concomitant]
     Dates: start: 20060131, end: 20060206
  9. FLUMARIN [Concomitant]
     Dates: start: 20060131, end: 20060206

REACTIONS (3)
  - DIABETES MELLITUS INADEQUATE CONTROL [None]
  - HEPATIC FUNCTION ABNORMAL [None]
  - LIVER DISORDER [None]
